FAERS Safety Report 9064928 (Version 2)
Quarter: 2013Q1

REPORT INFORMATION
  Report Type: Report from Study
  Country: DE (occurrence: DE)
  Receive Date: 20130128
  Receipt Date: 20130128
  Transmission Date: 20140127
  Serious: Yes (Death, Hospitalization)
  Sender: FDA-Public Use
  Company Number: DE-ROCHE-1174983

PATIENT
  Age: 68 Year
  Sex: Female
  Weight: 62 kg

DRUGS (7)
  1. BEVACIZUMAB [Suspect]
     Indication: OVARIAN CANCER
     Dosage: LAST DOSE PRIOR TO SAE 11/DEC/2012
     Route: 042
     Dates: start: 20121017
  2. CARBOPLATIN [Suspect]
     Indication: OVARIAN CANCER
     Dosage: LAST DOSE PRIOR TO SAE 11/DEC/2012
     Route: 042
     Dates: start: 20121017
  3. PACLITAXEL [Suspect]
     Indication: OVARIAN CANCER
     Dosage: LAST DOSE PRIOR TO SAE 11/DEC/2012
     Route: 011
     Dates: start: 20121017
  4. DELIX [Concomitant]
     Indication: HYPERTONIA
     Dosage: DATE OF LAST ADMINISTRATION: 23/JAN/2013
     Route: 048
     Dates: start: 2007
  5. SIMVAHEXAL [Concomitant]
     Indication: HYPERCHOLESTEROLAEMIA
     Dosage: DATE OF LAST ADMINISTRATION: 23/JAN/2013
     Route: 048
     Dates: start: 2007
  6. ZIENAM [Concomitant]
     Dosage: DATE OF LAST ADMINISTRATION: 23/JAN/2013
     Route: 042
     Dates: start: 20130110
  7. CLEXANE [Concomitant]
     Route: 058
     Dates: start: 20121227, end: 20130123

REACTIONS (2)
  - Anal fistula [Fatal]
  - General physical health deterioration [Fatal]
